FAERS Safety Report 17029557 (Version 7)
Quarter: 2021Q3

REPORT INFORMATION
  Report Type: Spontaneous
  Country: US (occurrence: US)
  Receive Date: 20191114
  Receipt Date: 20210703
  Transmission Date: 20211014
  Serious: Yes (Other)
  Sender: FDA-Public Use
  Company Number: US-UNITED THERAPEUTICS-UNT-2019-018891

PATIENT
  Sex: Female
  Weight: 116.55 kg

DRUGS (4)
  1. ORENITRAM [Suspect]
     Active Substance: TREPROSTINIL
     Dosage: 5 MG, Q8H
     Route: 048
     Dates: end: 201912
  2. ORENITRAM [Suspect]
     Active Substance: TREPROSTINIL
     Indication: PULMONARY ARTERIAL HYPERTENSION
     Dosage: 2.5 MG, TID
     Route: 048
     Dates: start: 20190522
  3. ORENITRAM [Suspect]
     Active Substance: TREPROSTINIL
     Indication: PULMONARY ARTERIAL HYPERTENSION
     Dosage: UNK
     Route: 048
  4. ORENITRAM [Suspect]
     Active Substance: TREPROSTINIL
     Dosage: 7.5 MG, Q8H
     Route: 048

REACTIONS (21)
  - Anaemia [Unknown]
  - Throat irritation [Unknown]
  - Anxiety [Unknown]
  - Myalgia [Unknown]
  - Headache [Unknown]
  - Nervousness [Unknown]
  - Therapy non-responder [Unknown]
  - Oxygen saturation decreased [Unknown]
  - Retching [Unknown]
  - Abdominal discomfort [Unknown]
  - Anorectal discomfort [Unknown]
  - Presyncope [Unknown]
  - Heart rate increased [Unknown]
  - Loss of consciousness [Unknown]
  - Oedema [Unknown]
  - Chest discomfort [Unknown]
  - Renal impairment [Unknown]
  - Hypotension [Unknown]
  - Cough [Unknown]
  - Muscle tightness [Unknown]
  - Diarrhoea [Unknown]

NARRATIVE: CASE EVENT DATE: 2019
